FAERS Safety Report 6587049-8 (Version None)
Quarter: 2010Q1

REPORT INFORMATION
  Report Type: 
  Country: None (occurrence: None)
  Receive Date: 20100217
  Receipt Date: 20090415
  Transmission Date: 20100710
  Serious: No
  Sender: FDA-Public Use
  Company Number: US-ALLERGAN-0905216US

PATIENT
  Age: 70 Year
  Sex: Female

DRUGS (13)
  1. BOTOX [Suspect]
     Indication: NECK PAIN
     Dosage: 100 UNITS, SINGLE
     Route: 030
     Dates: start: 20090406, end: 20090406
  2. BOTOX [Suspect]
     Indication: MUSCULOSKELETAL PAIN
  3. WELLBUTRIN [Concomitant]
     Dosage: 450 MG, QD
  4. LOVASTATIN [Concomitant]
     Dosage: 40 MG, QD
  5. LISINOPRIL [Concomitant]
     Dosage: 20 MG, QD
  6. ZYRTEC [Concomitant]
     Dosage: 10 MG, QD
  7. LEVOTHYROXINE SODIUM [Concomitant]
     Dosage: 100 UG, QD
  8. ENABLEX [Concomitant]
     Dosage: 7.5 MG, QD
  9. HYDROCODONE [Concomitant]
     Dosage: UNK, PRN
  10. COLCHICINE [Concomitant]
     Dosage: 0.6 MG, QD
  11. FINASTERIDE [Concomitant]
     Dosage: 2.5 MG, QD
  12. KLONOPIN [Concomitant]
     Dosage: 1.5 MG, QD
  13. VAGIFEM [Concomitant]
     Dosage: 25 MG, 2X/WEEK

REACTIONS (3)
  - MUSCLE SPASMS [None]
  - NECK PAIN [None]
  - PAIN IN EXTREMITY [None]
